FAERS Safety Report 22258447 (Version 1)
Quarter: 2023Q2

REPORT INFORMATION
  Report Type: Spontaneous
  Country: US (occurrence: None)
  Receive Date: 20230425
  Receipt Date: 20230425
  Transmission Date: 20230722
  Serious: Yes (Hospitalization)
  Sender: FDA-Public Use
  Company Number: None

PATIENT
  Age: 68 Year
  Sex: Female

DRUGS (1)
  1. ENBREL [Suspect]
     Active Substance: ETANERCEPT
     Indication: Rheumatoid arthritis
     Dosage: 25MG OTHER SUBCUTANEOUS
     Route: 058
     Dates: start: 201105, end: 20230411

REACTIONS (3)
  - Device related infection [None]
  - Therapy interrupted [None]
  - Arthritis infective [None]

NARRATIVE: CASE EVENT DATE: 20230411
